FAERS Safety Report 9877975 (Version 1)
Quarter: 2014Q1

REPORT INFORMATION
  Report Type: Spontaneous
  Country: US (occurrence: US)
  Receive Date: 20140206
  Receipt Date: 20140206
  Transmission Date: 20141002
  Serious: Yes (Other)
  Sender: FDA-Public Use
  Company Number: US-BAYER-2014-016319

PATIENT
  Sex: Female

DRUGS (2)
  1. MIRENA [Suspect]
     Indication: CONTRACEPTION
     Dosage: 20 MCG/24HR, CONT
     Route: 015
     Dates: start: 201302
  2. MIRENA [Suspect]
     Indication: CONTRACEPTION
     Dosage: 20 MCG/24HR, CONT
     Route: 015
     Dates: start: 20140111

REACTIONS (8)
  - Device expulsion [None]
  - Genital haemorrhage [None]
  - Vaginal discharge [None]
  - Dyspepsia [None]
  - Dyspareunia [None]
  - Coital bleeding [None]
  - Fatigue [None]
  - Pyrexia [None]
